FAERS Safety Report 7258479-6 (Version None)
Quarter: 2011Q1

REPORT INFORMATION
  Report Type: 
  Country: None (occurrence: None)
  Receive Date: 20110129
  Receipt Date: 20100821
  Transmission Date: 20110831
  Serious: No
  Sender: FDA-Public Use
  Company Number: US-ABBOTT-10P-163-0665419-00

PATIENT
  Sex: Male

DRUGS (2)
  1. HUMIRA [Suspect]
     Indication: RHEUMATOID ARTHRITIS
     Dates: start: 20040801
  2. HUMIRA [Suspect]

REACTIONS (6)
  - BACK PAIN [None]
  - ANGER [None]
  - MOOD SWINGS [None]
  - AFFECT LABILITY [None]
  - IRRITABILITY [None]
  - ILL-DEFINED DISORDER [None]
